FAERS Safety Report 6368820-4 (Version None)
Quarter: 2009Q3

REPORT INFORMATION
  Report Type: 
  Country: None (occurrence: None)
  Receive Date: 20090916
  Receipt Date: 20090908
  Transmission Date: 20100115
  Serious: Yes (Other)
  Sender: FDA-Public Use
  Company Number: ADR20262009

PATIENT

DRUGS (1)
  1. CABERGOLINE [Suspect]
     Indication: HYPERPROLACTINAEMIA
     Dosage: 0.5MG, TRANSPLACENTAL
     Route: 064
     Dates: start: 20070906, end: 20071223

REACTIONS (3)
  - FOETAL HEART RATE DECREASED [None]
  - MATERNAL DRUGS AFFECTING FOETUS [None]
  - VENTOUSE EXTRACTION [None]
